FAERS Safety Report 10019816 (Version 1)
Quarter: 2014Q1

REPORT INFORMATION
  Report Type: Spontaneous
  Country: US (occurrence: US)
  Receive Date: 20140318
  Receipt Date: 20140318
  Transmission Date: 20141002
  Serious: No
  Sender: FDA-Public Use
  Company Number: US-GALDERMA-US13004146

PATIENT
  Age: 46 Year
  Sex: Female

DRUGS (10)
  1. MIRVASO (BRIMONIDINE) TOPICAL GEL, 0.33% [Suspect]
     Indication: ROSACEA
     Dosage: 0.33%
     Route: 061
     Dates: start: 20131118, end: 20131210
  2. MINERAL POWDER [Concomitant]
     Indication: THERAPEUTIC SKIN CARE TOPICAL
     Route: 061
  3. CETAPHIL GENTLE SKIN CLEANSER [Concomitant]
     Indication: THERAPEUTIC SKIN CARE TOPICAL
     Route: 061
     Dates: start: 1998
  4. LAROCHE POSAY DAILY MOISTURIZER WITH SPF [Concomitant]
     Indication: DRY SKIN PROPHYLAXIS
     Route: 061
  5. LAROCHE POSAY DAILY MOISTURIZER WITH SPF [Concomitant]
     Indication: PROPHYLAXIS AGAINST SOLAR RADIATION
  6. METROGEL  (METRONIDAZOLE) GEL, 1% [Concomitant]
     Indication: ROSACEA
     Dosage: 1%
     Route: 061
     Dates: start: 2008
  7. VITAMIN D [Concomitant]
  8. BIOTIN [Concomitant]
  9. FISH OIL [Concomitant]
  10. B-12 [Concomitant]

REACTIONS (8)
  - Pallor [Recovered/Resolved]
  - Feeling hot [Recovered/Resolved]
  - Erythema [Recovered/Resolved]
  - Pain of skin [Recovered/Resolved]
  - Skin burning sensation [Recovered/Resolved]
  - Flushing [Recovering/Resolving]
  - Off label use [Recovered/Resolved]
  - Drug ineffective for unapproved indication [Not Recovered/Not Resolved]
